FAERS Safety Report 5822146-3 (Version None)
Quarter: 2008Q3

REPORT INFORMATION
  Report Type: 
  Country: None (occurrence: None)
  Receive Date: 20080725
  Receipt Date: 20080716
  Transmission Date: 20090109
  Serious: Yes (Hospitalization, Other)
  Sender: FDA-Public Use
  Company Number: PHRM2008FR01476

PATIENT
  Sex: Male

DRUGS (8)
  1. EXELON [Suspect]
     Indication: DEMENTIA ALZHEIMER'S TYPE
     Dosage: 19MG
     Dates: start: 20061111, end: 20070501
  2. EXELON [Suspect]
     Dosage: 4.5 MG + 3 MG/DAY
     Route: 048
     Dates: start: 20071001
  3. EXELON [Suspect]
     Dosage: 4.5 MG + 3 MG/DAY
     Route: 048
     Dates: start: 20080401
  4. EXELON [Suspect]
     Dosage: 3 MG, BID
     Route: 048
     Dates: start: 20080304, end: 20080401
  5. ESCITALOPRAM (SEROPLEX) [Concomitant]
  6. OMIX [Concomitant]
  7. TAHOR [Concomitant]
  8. CIMETIDINE [Concomitant]

REACTIONS (7)
  - CARDIAC PACEMAKER INSERTION [None]
  - LOSS OF CONSCIOUSNESS [None]
  - MALAISE [None]
  - SINUS ARREST [None]
  - SINUS BRADYCARDIA [None]
  - SYNCOPE VASOVAGAL [None]
  - VOMITING [None]
